FAERS Safety Report 19719310 (Version 3)
Quarter: 2021Q3

REPORT INFORMATION
  Report Type: Report from Study
  Country: None (occurrence: GB)
  Receive Date: 20210818
  Receipt Date: 20210924
  Transmission Date: 20211014
  Serious: Yes (Hospitalization)
  Sender: FDA-Public Use
  Company Number: GB-ABBVIE-21P-167-4035239-00

PATIENT
  Age: 80 Year
  Sex: Male
  Weight: 84 kg

DRUGS (18)
  1. LANSOPRAZOLE. [Concomitant]
     Active Substance: LANSOPRAZOLE
     Indication: PROPHYLAXIS
     Route: 048
     Dates: start: 20170223
  2. LOSARTAN POTASSIUM. [Concomitant]
     Active Substance: LOSARTAN POTASSIUM
     Indication: HYPERTENSION
     Dosage: AT NIGHT
     Route: 048
     Dates: start: 20151126
  3. CLOTRIMAZOLE. [Concomitant]
     Active Substance: CLOTRIMAZOLE
     Indication: SCROTAL INFECTION
     Route: 061
     Dates: start: 20210722
  4. SIMVASTATIN. [Concomitant]
     Active Substance: SIMVASTATIN
     Indication: PROPHYLAXIS
     Dosage: NIGHTLY
     Route: 048
     Dates: start: 20151126, end: 20210626
  5. TAMSULOSIN [Concomitant]
     Active Substance: TAMSULOSIN
     Indication: BENIGN PROSTATIC HYPERPLASIA
     Route: 048
     Dates: start: 20190122
  6. SIMVASTATIN. [Concomitant]
     Active Substance: SIMVASTATIN
     Route: 048
     Dates: start: 20210713
  7. ALLOPURINOL. [Concomitant]
     Active Substance: ALLOPURINOL
     Indication: PROPHYLAXIS
     Route: 048
     Dates: start: 20210628, end: 20210725
  8. SODIUM CHLORIDE 0.9% MOUTHWASH [Concomitant]
     Indication: PROPHYLAXIS
     Route: 048
     Dates: start: 20210628
  9. AZACITIDINE. [Suspect]
     Active Substance: AZACITIDINE
     Indication: MYELODYSPLASTIC SYNDROME
     Dosage: 7 DAYS WITHIN THE FIRST 9 DAYS OF EACH 28 DAY CYCLE
     Route: 058
     Dates: start: 20210628
  10. DOUBLEBASE GEL [Concomitant]
     Indication: DRY SKIN
     Route: 061
     Dates: start: 20171101
  11. CIPROFLOXACIN. [Concomitant]
     Active Substance: CIPROFLOXACIN
     Indication: INFECTION PROPHYLAXIS
     Route: 048
     Dates: start: 20210628
  12. DOMPERIDONE [Concomitant]
     Active Substance: DOMPERIDONE
     Indication: PROPHYLAXIS OF NAUSEA AND VOMITING
     Route: 048
     Dates: start: 20210628
  13. PARACETAMOL [Concomitant]
     Active Substance: ACETAMINOPHEN
     Indication: PAIN
     Route: 048
     Dates: start: 20210609
  14. FUCIDIN [Concomitant]
     Active Substance: FUSIDATE SODIUM
     Indication: SCROTAL INFECTION
     Route: 061
     Dates: start: 20210725
  15. CARBOMER ^980^ [Concomitant]
     Indication: DRY EYE
     Dosage: DROPS AS DIRECTED
     Route: 047
     Dates: start: 20210421
  16. VENETOCLAX. [Suspect]
     Active Substance: VENETOCLAX
     Indication: MYELODYSPLASTIC SYNDROME
     Dosage: DAYS 1 ? 14 OF EACH 28 DAY CYCLE
     Route: 048
     Dates: start: 20210628, end: 20210806
  17. DOCUSATE [Concomitant]
     Active Substance: DOCUSATE
     Indication: CONSTIPATION
     Route: 048
     Dates: start: 20210728
  18. SIMVASTATIN. [Concomitant]
     Active Substance: SIMVASTATIN
     Indication: BLOOD CHOLESTEROL
     Route: 048
     Dates: start: 20210713

REACTIONS (2)
  - Rash [Not Recovered/Not Resolved]
  - Epistaxis [Recovered/Resolved]

NARRATIVE: CASE EVENT DATE: 20210807
